FAERS Safety Report 4418602-5 (Version None)
Quarter: 2004Q3

REPORT INFORMATION
  Report Type: 
  Country: None (occurrence: None)
  Receive Date: 20040809
  Receipt Date: 20030618
  Transmission Date: 20050211
  Serious: No
  Sender: FDA-Public Use
  Company Number: US-GLAXOSMITHKLINE-A0413109A

PATIENT
  Age: 52 Year
  Sex: Female

DRUGS (5)
  1. PAXIL [Suspect]
     Route: 048
     Dates: start: 19980101, end: 20040101
  2. NEURONTIN [Suspect]
     Dosage: 300MG FOUR TIMES PER DAY
  3. WELLBUTRIN SR [Suspect]
     Dosage: 150MG PER DAY
     Route: 048
     Dates: start: 20040101
  4. TRAZODONE HCL [Concomitant]
  5. KLONOPIN [Concomitant]

REACTIONS (13)
  - AGITATION [None]
  - ALOPECIA [None]
  - ANGER [None]
  - DRUG WITHDRAWAL SYNDROME [None]
  - DYSPHONIA [None]
  - HYPERSENSITIVITY [None]
  - INFLUENZA LIKE ILLNESS [None]
  - INSOMNIA [None]
  - NAUSEA [None]
  - PARAESTHESIA [None]
  - PERFORMANCE STATUS DECREASED [None]
  - SMOKER [None]
  - SOMNOLENCE [None]
